FAERS Safety Report 5861785-0 (Version None)
Quarter: 2008Q3

REPORT INFORMATION
  Report Type: 
  Country: None (occurrence: None)
  Receive Date: 20080826
  Receipt Date: 20080811
  Transmission Date: 20090109
  Serious: Yes (Other)
  Sender: FDA-Public Use
  Company Number: 200808IM000240

PATIENT

DRUGS (3)
  1. ACTIMMUNE [Suspect]
     Indication: HEPATITIS C
     Dosage: 100 UG, 3/WEEK
  2. PEGINTERFERON GAMMA-2A [Suspect]
     Indication: HEPATITIS C
     Dosage: 180 UG, WEEKLY
  3. RIBAVIRIN [Suspect]
     Indication: HEPATITIS C
     Dosage: 1000 MG, DAILY

REACTIONS (2)
  - HAEMATEMESIS [None]
  - INTESTINAL OBSTRUCTION [None]
